FAERS Safety Report 14374827 (Version 1)
Quarter: 2018Q1

REPORT INFORMATION
  Report Type: Spontaneous
  Country: US (occurrence: US)
  Receive Date: 20180111
  Receipt Date: 20180111
  Transmission Date: 20180509
  Serious: No
  Sender: FDA-Public Use
  Company Number: US-BAYER-2018-006365

PATIENT
  Age: 37 Year
  Sex: Female

DRUGS (1)
  1. ESTRADIOL. [Suspect]
     Active Substance: ESTRADIOL
     Dosage: UNK
     Route: 062
     Dates: start: 20180102, end: 20180104

REACTIONS (2)
  - Application site pruritus [None]
  - Application site rash [Recovering/Resolving]

NARRATIVE: CASE EVENT DATE: 20180102
